FAERS Safety Report 12355097 (Version 1)
Quarter: 2016Q2

REPORT INFORMATION
  Report Type: Spontaneous
  Country: US (occurrence: US)
  Receive Date: 20160511
  Receipt Date: 20160511
  Transmission Date: 20160815
  Serious: No
  Sender: FDA-Public Use
  Company Number: ADR-2015-01535

PATIENT
  Age: 55 Year
  Sex: Female
  Weight: 66 kg

DRUGS (19)
  1. LIDODERM [Suspect]
     Active Substance: LIDOCAINE
     Route: 003
  2. ALPRAZOLAM 0.5 MG [Suspect]
     Active Substance: ALPRAZOLAM
     Route: 048
  3. ACIPHEX [Suspect]
     Active Substance: RABEPRAZOLE SODIUM
     Route: 048
  4. VISTARIL [Suspect]
     Active Substance: HYDROXYZINE PAMOATE
  5. DILAUDID [Suspect]
     Active Substance: HYDROMORPHONE HYDROCHLORIDE
     Indication: CERVICAL RADICULOPATHY
     Route: 048
  6. FLONASE [Suspect]
     Active Substance: FLUTICASONE PROPIONATE
     Route: 045
  7. TYLENOL EXTRA STRENGTH [Suspect]
     Active Substance: ACETAMINOPHEN
     Route: 048
  8. VISTARIL [Suspect]
     Active Substance: HYDROXYZINE PAMOATE
     Route: 048
  9. ZANAFLEX [Suspect]
     Active Substance: TIZANIDINE HYDROCHLORIDE
     Route: 048
  10. SPINAL INJECTIONS [Suspect]
     Active Substance: UNSPECIFIED INGREDIENT
  11. ATROVENT HFA [Suspect]
     Active Substance: IPRATROPIUM BROMIDE
     Route: 055
  12. METHADONE [Suspect]
     Active Substance: METHADONE HYDROCHLORIDE
  13. COMPOUNDED BACLOFEN [Suspect]
     Active Substance: BACLOFEN
     Dosage: 100.1 MCG/DAY
     Route: 037
  14. NYSTATIN 100000 UNIT/GM EXT CREA [Suspect]
     Active Substance: NYSTATIN
     Route: 048
  15. CLONIDINE. [Suspect]
     Active Substance: CLONIDINE
     Dosage: 3.403 MCG/DAY
     Route: 037
  16. BENADRYL-D ALLERGY AND SINUS [Suspect]
     Active Substance: DIPHENHYDRAMINE HYDROCHLORIDE\PHENYLEPHRINE HYDROCHLORIDE
     Route: 048
  17. SONATA [Suspect]
     Active Substance: ZALEPLON
     Route: 048
  18. FLONASE [Suspect]
     Active Substance: FLUTICASONE PROPIONATE
     Route: 045
  19. DURAGESIC [Suspect]
     Active Substance: FENTANYL
     Route: 003

REACTIONS (20)
  - Pain [Recovering/Resolving]
  - Neck pain [Recovering/Resolving]
  - Back pain [Recovering/Resolving]
  - Paraesthesia [Recovering/Resolving]
  - Myalgia [Recovering/Resolving]
  - Spinal osteoarthritis [Recovering/Resolving]
  - Enthesopathy [Recovering/Resolving]
  - Myositis [None]
  - Pain in extremity [Recovering/Resolving]
  - Condition aggravated [Recovering/Resolving]
  - Change of bowel habit [Unknown]
  - Urinary retention [Unknown]
  - Nerve root compression [Recovering/Resolving]
  - Overweight [Recovering/Resolving]
  - Therapeutic response decreased [Recovering/Resolving]
  - Burning sensation [Recovering/Resolving]
  - Nuclear magnetic resonance imaging abnormal [Recovering/Resolving]
  - Musculoskeletal pain [Recovering/Resolving]
  - Gait disturbance [Recovering/Resolving]
  - Arthralgia [Recovering/Resolving]

NARRATIVE: CASE EVENT DATE: 201504
